FAERS Safety Report 10073014 (Version 2)
Quarter: 2014Q2

REPORT INFORMATION
  Report Type: Spontaneous
  Country: CH (occurrence: CH)
  Receive Date: 20140411
  Receipt Date: 20140411
  Transmission Date: 20141212
  Serious: Yes (Hospitalization)
  Sender: FDA-Public Use
  Company Number: CH-PFIZER INC-2014086876

PATIENT
  Age: 81 Year
  Sex: Female

DRUGS (15)
  1. ALDACTONE [Suspect]
     Dosage: 50 MG, 1X/DAY
     Route: 048
  2. ALDACTONE [Suspect]
     Dosage: 25 MG, 1X/DAY
  3. CITALOPRAM HBR [Suspect]
     Dosage: 20 MG, 1X/DAY
     Route: 048
     Dates: end: 20140121
  4. TRIATEC [Suspect]
     Dosage: 5 MG, 1X/DAY
     Route: 048
     Dates: end: 20140121
  5. TORASEMIDE [Suspect]
     Dosage: 10 MG, 1X/DAY
     Route: 048
     Dates: end: 20140121
  6. METOLAZONE [Suspect]
     Dosage: 2.5 MG, 3XWEEK
     Route: 048
     Dates: end: 20140121
  7. SINTROM [Concomitant]
     Dosage: 1 MG, UNK
     Route: 048
  8. DANCOR [Concomitant]
     Dosage: 10 MG, 2X/DAY
     Route: 048
     Dates: end: 201401
  9. PRAMIPEXOLE DIHYDROCHLORIDE [Concomitant]
     Dosage: 0.25 MG, 1X/DAY
     Route: 048
  10. LYRICA [Concomitant]
     Dosage: 50 MG, 1X/DAY
     Route: 048
     Dates: end: 201401
  11. GLIVEC [Concomitant]
     Dosage: 200 MG, 1X/DAY
     Route: 048
  12. PANTOPRAZOLE SODIUM SESQUIHYDRATE [Concomitant]
     Dosage: 20 MG, 1X/DAY
     Route: 048
  13. OXYCONTIN [Concomitant]
     Dosage: 5 MG, 1X/DAY
     Route: 048
  14. DUROGESIC [Concomitant]
     Dosage: 1 DF, EVERY THREE DAYS
     Route: 061
  15. NITRODERM [Concomitant]
     Dosage: 1 DF, 1X/DAY
     Route: 061

REACTIONS (2)
  - Hyponatraemia [Recovered/Resolved]
  - Confusional state [Recovered/Resolved]
